FAERS Safety Report 17864342 (Version 1)
Quarter: 2020Q2

REPORT INFORMATION
  Report Type: Spontaneous
  Country: US (occurrence: US)
  Receive Date: 20200605
  Receipt Date: 20200605
  Transmission Date: 20200714
  Serious: No
  Sender: FDA-Public Use
  Company Number: US-MYLANLABS-2020M1052390

PATIENT
  Sex: Female
  Weight: 67 kg

DRUGS (1)
  1. XULANE [Suspect]
     Active Substance: ETHINYL ESTRADIOL\NORELGESTROMIN
     Indication: CONTRACEPTION
     Dosage: DAY
     Route: 062

REACTIONS (2)
  - Product adhesion issue [Unknown]
  - Menstrual disorder [Recovered/Resolved]
